FAERS Safety Report 9693438 (Version 4)
Quarter: 2014Q2

REPORT INFORMATION
  Report Type: Spontaneous
  Country: JP (occurrence: JP)
  Receive Date: 20131118
  Receipt Date: 20140428
  Transmission Date: 20141212
  Serious: Yes (Hospitalization)
  Sender: FDA-Public Use
  Company Number: JP-TEVA-444504USA

PATIENT
  Age: 69 Year
  Sex: Female
  Weight: 50 kg

DRUGS (15)
  1. BENDAMUSTINE [Suspect]
     Indication: B-CELL LYMPHOMA
     Route: 042
     Dates: start: 20131001, end: 20131002
  2. BENDAMUSTINE [Suspect]
     Route: 042
     Dates: start: 20131029, end: 20131030
  3. BENDAMUSTINE [Suspect]
     Route: 042
     Dates: start: 20131126, end: 20131127
  4. BENDAMUSTINE [Suspect]
     Route: 042
     Dates: start: 20131224, end: 20131225
  5. RITUXIMAB [Concomitant]
     Dates: start: 20130930
  6. SULFAMETHOXAZOLE/TRIMETHOPRIM [Concomitant]
     Dates: start: 20130928
  7. ALENDRONATE SODIUM [Concomitant]
  8. PARACETAMOL [Concomitant]
     Dates: start: 20130930
  9. PARACETAMOL [Concomitant]
     Dates: start: 20131028
  10. PARACETAMOL [Concomitant]
     Dates: start: 20131125
  11. PARACETAMOL [Concomitant]
     Dates: start: 20131223
  12. CHLORPHENAMINE MALEATE [Concomitant]
     Dates: start: 20130930
  13. CHLORPHENAMINE MALEATE [Concomitant]
     Dates: start: 20131028
  14. CHLORPHENAMINE MALEATE [Concomitant]
     Dates: start: 20131125
  15. CHLORPHENAMINE MALEATE [Concomitant]
     Dates: start: 20131223

REACTIONS (2)
  - Cerebral infarction [Recovered/Resolved]
  - Pruritus [Not Recovered/Not Resolved]
